FAERS Safety Report 12669031 (Version 1)
Quarter: 2016Q3

REPORT INFORMATION
  Report Type: Spontaneous
  Country: CN (occurrence: CN)
  Receive Date: 20160819
  Receipt Date: 20160819
  Transmission Date: 20161109
  Serious: Yes (Other)
  Sender: FDA-Public Use
  Company Number: PHHY2016CN113423

PATIENT
  Age: 49 Year
  Sex: Female

DRUGS (3)
  1. ZOLEDRONATE [Suspect]
     Active Substance: ZOLEDRONIC ACID
     Indication: METASTASES TO BONE
     Dosage: UNK
     Route: 042
  2. NEXAVAR [Concomitant]
     Active Substance: SORAFENIB
     Indication: RENAL CANCER METASTATIC
     Dosage: UNK
     Route: 048
  3. DISODIUM CLODRONATE [Concomitant]
     Indication: METASTASES TO BONE
     Dosage: UNK
     Route: 048

REACTIONS (2)
  - Dental fistula [Recovered/Resolved]
  - Osteonecrosis of jaw [Recovered/Resolved]
